FAERS Safety Report 4582315-X (Version None)
Quarter: 2005Q1

REPORT INFORMATION
  Report Type: 
  Country: None (occurrence: None)
  Receive Date: 20050211
  Receipt Date: 20050211
  Transmission Date: 20050727
  Serious: Yes (Hospitalization)
  Sender: FDA-Public Use
  Company Number: None

PATIENT
  Age: 61 Year
  Sex: Female

DRUGS (1)
  1. TAXOTERE [Suspect]

REACTIONS (4)
  - DYSPNOEA EXACERBATED [None]
  - HYPOTENSION [None]
  - METASTASES TO LUNG [None]
  - RESPIRATORY DISTRESS [None]
